FAERS Safety Report 6654109-2 (Version None)
Quarter: 2010Q1

REPORT INFORMATION
  Report Type: 
  Country: None (occurrence: None)
  Receive Date: 20100326
  Receipt Date: 20100324
  Transmission Date: 20100710
  Serious: Yes (Life-Threatening, Hospitalization)
  Sender: FDA-Public Use
  Company Number: PHHO2010RU03694

PATIENT
  Sex: Male
  Weight: 80.2 kg

DRUGS (18)
  1. BLINDED ALISKIREN ALI+TAB+CF [Suspect]
     Dosage: CODE NOT BROKEN
     Route: 048
  2. BLINDED ENALAPRIL COMP-ENA+ [Suspect]
     Dosage: CODE NOT BROKEN
     Route: 048
  3. BLINDED NO TREATMENT RECEIVED NOMED [Suspect]
     Dosage: CODE NOT BROKEN
     Route: 048
  4. BLINDED ALISKIREN ALI+TAB+CF [Suspect]
     Dosage: CODE NOT BROKEN
     Route: 048
     Dates: start: 20100303, end: 20100306
  5. BLINDED ENALAPRIL COMP-ENA+ [Suspect]
     Dosage: CODE NOT BROKEN
     Route: 048
     Dates: start: 20100303, end: 20100306
  6. BLINDED NO TREATMENT RECEIVED NOMED [Suspect]
     Dosage: CODE NOT BROKEN
     Route: 048
     Dates: start: 20100303, end: 20100306
  7. BLINDED ALISKIREN ALI+TAB+CF [Suspect]
     Dosage: NO TREATMENT
     Route: 048
     Dates: start: 20100307, end: 20100309
  8. BLINDED ENALAPRIL COMP-ENA+ [Suspect]
     Dosage: NO TREATMENT
     Route: 048
     Dates: start: 20100307, end: 20100309
  9. BLINDED NO TREATMENT RECEIVED NOMED [Suspect]
     Dosage: NO TREATMENT
     Route: 048
     Dates: start: 20100307, end: 20100309
  10. BLINDED ALISKIREN ALI+TAB+CF [Suspect]
     Dosage: UNK
     Route: 048
     Dates: start: 20100310
  11. BLINDED ENALAPRIL COMP-ENA+ [Suspect]
     Dosage: UNK
     Route: 048
     Dates: start: 20100310
  12. BLINDED NO TREATMENT RECEIVED NOMED [Suspect]
     Dosage: UNK
     Route: 048
     Dates: start: 20100310
  13. ALISKIREN [Suspect]
     Indication: CARDIAC FAILURE
  14. COMPARATOR ENALAPRIL [Suspect]
     Indication: CARDIAC FAILURE
     Dosage: UNK
  15. ISOSORBIDE DINITRATE [Suspect]
     Indication: ANGINA PECTORIS
  16. NITROGLYCERIN [Suspect]
  17. ASPIRIN [Concomitant]
     Indication: MYOCARDIAL INFARCTION
  18. SIMVASTATIN [Concomitant]
     Indication: DYSLIPIDAEMIA

REACTIONS (13)
  - ANGINA UNSTABLE [None]
  - CARDIAC DISORDER [None]
  - CARDIAC FAILURE [None]
  - CHEST PAIN [None]
  - CIRCULATORY COLLAPSE [None]
  - DISEASE PROGRESSION [None]
  - DIZZINESS [None]
  - HYPOTENSION [None]
  - LOSS OF CONSCIOUSNESS [None]
  - MYOCARDIAL ISCHAEMIA [None]
  - PULMONARY CONGESTION [None]
  - RIGHT VENTRICULAR FAILURE [None]
  - VENTRICULAR EXTRASYSTOLES [None]
